FAERS Safety Report 9450917 (Version 4)
Quarter: 2019Q4

REPORT INFORMATION
  Report Type: Spontaneous
  Country: FR (occurrence: FR)
  Receive Date: 20130807
  Receipt Date: 20191213
  Transmission Date: 20200122
  Serious: Yes (Other)
  Sender: FDA-Public Use
  Company Number: FR-ZYDUS-001867

PATIENT
  Age: 57 Year
  Sex: Female

DRUGS (6)
  1. AZATHIOPRINE/AZATHIOPRINE SODIUM [Concomitant]
     Active Substance: AZATHIOPRINE
     Indication: SYSTEMIC LUPUS ERYTHEMATOSUS
  2. HYDROXYCHLOROQUINE [Suspect]
     Active Substance: HYDROXYCHLOROQUINE
     Indication: SUBACUTE CUTANEOUS LUPUS ERYTHEMATOSUS
  3. PREDNISONE/PREDNISONE ACETATE [Suspect]
     Active Substance: PREDNISONE ACETATE
     Indication: SUBACUTE CUTANEOUS LUPUS ERYTHEMATOSUS
  4. METHOTREXATE/METHOTREXATE SODIUM [Suspect]
     Active Substance: METHOTREXATE\METHOTREXATE SODIUM
     Indication: SUBACUTE CUTANEOUS LUPUS ERYTHEMATOSUS
  5. OMEPRAZOLE. [Suspect]
     Active Substance: OMEPRAZOLE
     Indication: PRODUCT USED FOR UNKNOWN INDICATION
  6. MYCOPHENOLIC ACID. [Suspect]
     Active Substance: MYCOPHENOLIC ACID
     Indication: SUBACUTE CUTANEOUS LUPUS ERYTHEMATOSUS

REACTIONS (16)
  - Dermatitis psoriasiform [Recovering/Resolving]
  - Bicytopenia [Recovering/Resolving]
  - Skin lesion [Unknown]
  - Pyrexia [Recovering/Resolving]
  - Antinuclear antibody positive [Unknown]
  - General physical health deterioration [Recovering/Resolving]
  - Scar [Unknown]
  - DNA antibody [Unknown]
  - Lymphadenopathy [Recovering/Resolving]
  - Hypergammaglobulinaemia [Recovering/Resolving]
  - Subacute cutaneous lupus erythematosus [Unknown]
  - Evans syndrome [Recovering/Resolving]
  - Pyrexia [Unknown]
  - Systemic lupus erythematosus [Recovered/Resolved with Sequelae]
  - Pericarditis [Recovering/Resolving]
  - Drug ineffective [Unknown]
